FAERS Safety Report 17026102 (Version 3)
Quarter: 2019Q4

REPORT INFORMATION
  Report Type: Spontaneous
  Country: NO (occurrence: NO)
  Receive Date: 20191113
  Receipt Date: 20191231
  Transmission Date: 20200122
  Serious: Yes (Hospitalization, Other)
  Sender: FDA-Public Use
  Company Number: NO-GE HEALTHCARE LIFE SCIENCES-2019CSU005678

PATIENT

DRUGS (5)
  1. OMNIPAQUE [Suspect]
     Active Substance: IOHEXOL
     Indication: HYDROURETER
  2. SEROQUEL [Concomitant]
     Active Substance: QUETIAPINE FUMARATE
     Dosage: QD
  3. OMNIPAQUE [Suspect]
     Active Substance: IOHEXOL
     Indication: UROGRAM
  4. TRAMADOL. [Concomitant]
     Active Substance: TRAMADOL
     Dosage: 150 MG, UNK
  5. OMNIPAQUE [Suspect]
     Active Substance: IOHEXOL
     Indication: FLANK PAIN
     Dosage: 150 ML, SINGLE
     Route: 065
     Dates: start: 20191101, end: 20191101

REACTIONS (4)
  - Feeling hot [Recovered/Resolved]
  - Muscle spasms [Recovered/Resolved]
  - Dyspnoea [Recovered/Resolved]
  - Taste disorder [Recovered/Resolved]

NARRATIVE: CASE EVENT DATE: 20191101
